FAERS Safety Report 25529684 (Version 1)
Quarter: 2025Q3

REPORT INFORMATION
  Report Type: Spontaneous
  Country: US (occurrence: US)
  Receive Date: 20250708
  Receipt Date: 20250708
  Transmission Date: 20251021
  Serious: No
  Sender: FRESENIUS KABI
  Company Number: US-FreseniusKabi-FK202508691

PATIENT

DRUGS (1)
  1. FAMOTIDINE [Suspect]
     Active Substance: FAMOTIDINE
     Indication: Product used for unknown indication
     Route: 042

REACTIONS (5)
  - Chills [Unknown]
  - Hypertension [Unknown]
  - Tachycardia [Unknown]
  - Vomiting [Unknown]
  - Headache [Unknown]
